FAERS Safety Report 19250973 (Version 1)
Quarter: 2021Q2

REPORT INFORMATION
  Report Type: Report from Study
  Country: GB (occurrence: GB)
  Receive Date: 20210513
  Receipt Date: 20210513
  Transmission Date: 20210717
  Serious: Yes (Other)
  Sender: FDA-Public Use
  Company Number: GB-VISTAPHARM, INC.-VER202105-001233

PATIENT
  Age: 31 Year
  Sex: Male

DRUGS (1)
  1. HYDROCODONE AND ACETAMINOPHEN [Suspect]
     Active Substance: ACETAMINOPHEN\HYDROCODONE
     Indication: SUBSTANCE USE
     Dosage: UNKNOWN

REACTIONS (4)
  - Speech disorder [Unknown]
  - Drug dependence [Unknown]
  - Palate injury [Unknown]
  - Osteonecrosis of jaw [Unknown]
